FAERS Safety Report 6467701-5 (Version None)
Quarter: 2009Q4

REPORT INFORMATION
  Report Type: 
  Country: None (occurrence: None)
  Receive Date: 20091202
  Receipt Date: 20091125
  Transmission Date: 20100525
  Serious: Yes (Death, Hospitalization)
  Sender: FDA-Public Use
  Company Number: PHHY2009FR52663

PATIENT
  Age: 26 Year
  Sex: Female

DRUGS (1)
  1. CARBAMAZEPINE [Suspect]
     Indication: EPILEPSY
     Dosage: UNK

REACTIONS (4)
  - DRUG EXPOSURE DURING PREGNANCY [None]
  - EPILEPSY [None]
  - NEOPLASM PROGRESSION [None]
  - STATUS EPILEPTICUS [None]
